FAERS Safety Report 10083787 (Version 2)
Quarter: 2015Q2

REPORT INFORMATION
  Report Type: Spontaneous
  Country: US (occurrence: US)
  Receive Date: 20140417
  Receipt Date: 20150514
  Transmission Date: 20150821
  Serious: Yes (Other)
  Sender: FDA-Public Use
  Company Number: US-BAYER-2014-056958

PATIENT
  Age: 18 Year
  Sex: Female
  Weight: 70 kg

DRUGS (1)
  1. YASMIN [Suspect]
     Active Substance: DROSPIRENONE\ETHINYL ESTRADIOL
     Dosage: UNK
     Dates: start: 200412

REACTIONS (6)
  - Deep vein thrombosis [None]
  - Thrombosis [None]
  - Pain [None]
  - Pulmonary embolism [None]
  - Injury [None]
  - Cerebrovascular accident [None]

NARRATIVE: CASE EVENT DATE: 200506
